FAERS Safety Report 20424653 (Version 1)
Quarter: 2022Q1

REPORT INFORMATION
  Report Type: Spontaneous
  Country: NL (occurrence: NL)
  Receive Date: 20220203
  Receipt Date: 20220203
  Transmission Date: 20220423
  Serious: Yes (Other)
  Sender: FDA-Public Use
  Company Number: NL-LRB-00753696

PATIENT
  Age: 70 Year
  Sex: Female
  Weight: 79 kg

DRUGS (2)
  1. ESOMEPRAZOLE [Suspect]
     Active Substance: ESOMEPRAZOLE
     Indication: Dyspepsia
     Dosage: 20 MILLIGRAM, DAILY, 1X DAY
     Route: 065
     Dates: start: 2005, end: 20210301
  2. ZOLPIDEM TABLET 10MG / Brand name not specifiedZOLPIDEM TABLET 10MG [Concomitant]
     Indication: Product used for unknown indication
     Dosage: TABLET, 10 MG (MILLIGRAM) ()
     Route: 065

REACTIONS (2)
  - Polyneuropathy [Recovering/Resolving]
  - General physical health deterioration [Recovering/Resolving]

NARRATIVE: CASE EVENT DATE: 20210315
